FAERS Safety Report 8960137 (Version 1)
Quarter: 2012Q4

REPORT INFORMATION
  Report Type: 
  Country: IT (occurrence: IT)
  Receive Date: 20121211
  Receipt Date: 20121211
  Transmission Date: 20130627
  Serious: Yes (Other)
  Sender: FDA-Public Use
  Company Number: IT-GLAXOSMITHKLINE-B0851099A

PATIENT
  Age: 42 Year
  Sex: Female

DRUGS (3)
  1. SERETIDE [Suspect]
     Indication: ASTHMA
     Route: 065
  2. FLIXOTIDE [Suspect]
     Indication: ASTHMA
     Route: 055
  3. VENTOLIN [Suspect]
     Indication: ASTHMA
     Route: 055

REACTIONS (2)
  - Extrasystoles [Not Recovered/Not Resolved]
  - Asthma [Unknown]
